FAERS Safety Report 10549460 (Version 4)
Quarter: 2015Q2

REPORT INFORMATION
  Report Type: Report from Study
  Country: GB (occurrence: GB)
  Receive Date: 20141028
  Receipt Date: 20150603
  Transmission Date: 20150821
  Serious: Yes (Hospitalization)
  Sender: FDA-Public Use
  Company Number: PHFR2014GB007280

PATIENT
  Age: 43 Year
  Sex: Female
  Weight: 67 kg

DRUGS (1)
  1. ILARIS [Suspect]
     Active Substance: CANAKINUMAB
     Indication: CRYOPYRIN ASSOCIATED PERIODIC SYNDROME
     Dosage: 150 MG, QD
     Route: 058
     Dates: start: 20100409

REACTIONS (2)
  - Subcutaneous abscess [Recovered/Resolved]
  - Staphylococcus test positive [Recovered/Resolved]

NARRATIVE: CASE EVENT DATE: 20141001
